FAERS Safety Report 9115591 (Version 1)
Quarter: 2013Q1

REPORT INFORMATION
  Report Type: Spontaneous
  Country: US (occurrence: None)
  Receive Date: 20130221
  Receipt Date: 20130221
  Transmission Date: 20140127
  Serious: No
  Sender: FDA-Public Use
  Company Number: None

PATIENT
  Sex: Female

DRUGS (1)
  1. LUPRON DEPOT 3.75 MG MONTHLY [Suspect]
     Dosage: 3.75 MONTHLY IM
     Route: 030
     Dates: start: 201212, end: 201301

REACTIONS (3)
  - Haemorrhage [None]
  - Back pain [None]
  - Pain [None]
